FAERS Safety Report 11427304 (Version 1)
Quarter: 2015Q3

REPORT INFORMATION
  Report Type: Spontaneous
  Country: US (occurrence: None)
  Receive Date: 20150827
  Receipt Date: 20150827
  Transmission Date: 20151125
  Serious: Yes (Other)
  Sender: FDA-Public Use
  Company Number: None

PATIENT
  Age: 58 Year
  Sex: Male

DRUGS (1)
  1. TRETINOIN. [Suspect]
     Active Substance: TRETINOIN

REACTIONS (3)
  - Neuropathy peripheral [None]
  - Lacrimation increased [None]
  - Burning sensation [None]

NARRATIVE: CASE EVENT DATE: 20150810
